FAERS Safety Report 4836737-X (Version None)
Quarter: 2005Q4

REPORT INFORMATION
  Report Type: 
  Country: None (occurrence: None)
  Receive Date: 20051123
  Receipt Date: 20051115
  Transmission Date: 20060501
  Serious: Yes (Death, Hospitalization)
  Sender: FDA-Public Use
  Company Number: ZA-ABBOTT-05P-143-0317412-00

PATIENT
  Age: 24 Month
  Sex: Male

DRUGS (7)
  1. NORVIR [Suspect]
     Indication: HIV INFECTION
     Route: 048
     Dates: start: 20050426, end: 20050802
  2. EPILIM SYRUP [Suspect]
     Indication: DRUG USE FOR UNKNOWN INDICATION
     Dates: start: 20050101, end: 20050803
  3. ATAZANAVIR [Suspect]
     Indication: HIV INFECTION
     Route: 048
     Dates: start: 20050426, end: 20050804
  4. STAVUDINE [Suspect]
     Indication: HIV INFECTION
     Route: 048
  5. LAMIVUDINE [Suspect]
     Indication: HIV INFECTION
     Route: 048
  6. FENOTEROL HYDROBROMIDE [Concomitant]
     Indication: DRUG USE FOR UNKNOWN INDICATION
  7. DIAZEPAM [Concomitant]
     Indication: DRUG USE FOR UNKNOWN INDICATION

REACTIONS (13)
  - ACCIDENTAL OVERDOSE [None]
  - BRONCHOPNEUMONIA [None]
  - BRONCHOSPASM [None]
  - CYST RUPTURE [None]
  - DRUG LEVEL INCREASED [None]
  - EPILEPSY [None]
  - INCORRECT DOSE ADMINISTERED [None]
  - PORENCEPHALY [None]
  - PULMONARY HAEMORRHAGE [None]
  - RENAL IMPAIRMENT [None]
  - TACHYCARDIA [None]
  - TACHYPNOEA [None]
  - VOMITING [None]
